FAERS Safety Report 21298027 (Version 2)
Quarter: 2022Q4

REPORT INFORMATION
  Report Type: Report from Study
  Country: CO (occurrence: CO)
  Receive Date: 20220906
  Receipt Date: 20221115
  Transmission Date: 20230113
  Serious: Yes (Hospitalization, Other)
  Sender: FDA-Public Use
  Company Number: CO-BRISTOL-MYERS SQUIBB COMPANY-2022-101373

PATIENT
  Age: 51 Year
  Sex: Male
  Weight: 82 kg

DRUGS (1)
  1. OPDIVO [Suspect]
     Active Substance: NIVOLUMAB
     Indication: Renal cancer
     Dosage: 246 MG/ML EVERY 21 DAYS
     Route: 042
     Dates: start: 20220608

REACTIONS (6)
  - Hepatitis [Unknown]
  - Haemolytic anaemia [Unknown]
  - Cholestasis [Unknown]
  - Hypervolaemia [Unknown]
  - Hepatitis [Recovered/Resolved]
  - Off label use [Unknown]

NARRATIVE: CASE EVENT DATE: 20221001
